FAERS Safety Report 6082501-6 (Version None)
Quarter: 2009Q1

REPORT INFORMATION
  Report Type: 
  Country: None (occurrence: None)
  Receive Date: 20090202
  Receipt Date: 20070708
  Transmission Date: 20090719
  Serious: No
  Sender: FDA-Public Use
  Company Number: 265342

PATIENT
  Age: 5 Year
  Sex: Female
  Weight: 18.1 kg

DRUGS (1)
  1. NOVOLOG [Suspect]
     Indication: TYPE 1 DIABETES MELLITUS
     Dosage: SUBCUTAN.-PUMP

REACTIONS (3)
  - BLOOD GLUCOSE INCREASED [None]
  - URINE KETONE BODY PRESENT [None]
  - VOMITING [None]
